FAERS Safety Report 10675670 (Version 1)
Quarter: 2014Q4

REPORT INFORMATION
  Report Type: Spontaneous
  Country: NL (occurrence: NL)
  Receive Date: 20141224
  Receipt Date: 20141224
  Transmission Date: 20150529
  Serious: Yes (Other)
  Sender: FDA-Public Use
  Company Number: NL-ACTAVIS-2014-27218

PATIENT
  Age: 24 Year
  Sex: Female

DRUGS (3)
  1. AMOXICILLIN. [Suspect]
     Active Substance: AMOXICILLIN
     Indication: ENCEPHALITIS
     Dosage: 12 G, DAILY
     Route: 042
  2. CEFTRIAXON [Concomitant]
     Active Substance: CEFTRIAXONE
     Indication: ENCEPHALITIS
     Dosage: 2 G, BID
     Route: 042
  3. ACYCLOVIR (UNKNOWN) [Suspect]
     Active Substance: ACYCLOVIR
     Indication: ENCEPHALITIS
     Dosage: 1500 MG, DAILY
     Route: 042

REACTIONS (2)
  - Acute kidney injury [Recovered/Resolved]
  - Overdose [Unknown]
